FAERS Safety Report 4751174-4 (Version None)
Quarter: 2005Q3

REPORT INFORMATION
  Report Type: 
  Country: None (occurrence: None)
  Receive Date: 20050822
  Receipt Date: 20040413
  Transmission Date: 20060218
  Serious: Yes (Hospitalization)
  Sender: FDA-Public Use
  Company Number: 701866

PATIENT
  Age: 55 Year
  Sex: Male
  Weight: 99.5 kg

DRUGS (12)
  1. AMEVIVE [Suspect]
     Indication: PSORIASIS
     Dosage: 15 MG;QW;IM
     Route: 030
     Dates: start: 20040107, end: 20040201
  2. AMEVIVE [Suspect]
     Indication: PSORIASIS
     Dosage: 15 MG;QW;IM
     Route: 030
     Dates: start: 20040201, end: 20040301
  3. AMEVIVE [Suspect]
     Indication: PSORIASIS
     Dosage: 15 MG;QW;IM
     Route: 030
     Dates: start: 20040301
  4. METHOTREZATE [Concomitant]
  5. ADALAT [Concomitant]
  6. TEMGESIC (BUPRENORPHIN) [Concomitant]
  7. FURIX (FUROSEMID) [Concomitant]
  8. CIMETIDIN [Concomitant]
  9. IBUPROFEN [Concomitant]
  10. KALEROID (POTASSIUM CLORIDE) [Concomitant]
  11. ACETAMINOPHEN [Concomitant]
  12. ELOCON [Concomitant]

REACTIONS (6)
  - ERYSIPELAS [None]
  - ERYTHEMA [None]
  - OEDEMA [None]
  - PYREXIA [None]
  - SKIN LESION [None]
  - STAPHYLOCOCCAL INFECTION [None]
